FAERS Safety Report 10635978 (Version 2)
Quarter: 2015Q1

REPORT INFORMATION
  Report Type: Report from Study
  Country: US (occurrence: US)
  Receive Date: 20141205
  Receipt Date: 20150210
  Transmission Date: 20150720
  Serious: Yes (Death, Other)
  Sender: FDA-Public Use
  Company Number: US-GILEAD-2014-0125367

PATIENT
  Age: 80 Year
  Sex: Female

DRUGS (10)
  1. ISOSORBIDE [Concomitant]
     Active Substance: ISOSORBIDE
  2. PLAVIX [Concomitant]
     Active Substance: CLOPIDOGREL BISULFATE
  3. ATORVASTATIN [Concomitant]
     Active Substance: ATORVASTATIN
  4. RANOLAZINE [Suspect]
     Active Substance: RANOLAZINE
     Indication: ANGINA PECTORIS
     Dosage: 500 MG, UNK
     Dates: start: 20130426
  5. RANOLAZINE [Suspect]
     Active Substance: RANOLAZINE
     Dosage: 500 MG, UNK
     Route: 048
     Dates: start: 20120926
  6. CARVEDILOL. [Concomitant]
     Active Substance: CARVEDILOL
  7. PREDNISONE. [Concomitant]
     Active Substance: PREDNISONE
  8. LASIX [Concomitant]
     Active Substance: FUROSEMIDE
  9. IRON [Concomitant]
     Active Substance: IRON
  10. SPIRIVA [Concomitant]
     Active Substance: TIOTROPIUM BROMIDE MONOHYDRATE

REACTIONS (1)
  - Death [Fatal]
